FAERS Safety Report 7135211-8 (Version None)
Quarter: 2010Q4

REPORT INFORMATION
  Report Type: 
  Country: None (occurrence: None)
  Receive Date: 20101203
  Receipt Date: 20101122
  Transmission Date: 20110411
  Serious: No
  Sender: FDA-Public Use
  Company Number: US-PFIZER INC-2010159558

PATIENT
  Sex: Female

DRUGS (2)
  1. VENLAFAXINE HCL [Suspect]
     Indication: DEPRESSION
  2. VENLAFAXINE HCL [Suspect]
     Indication: ANXIETY

REACTIONS (2)
  - ANXIETY [None]
  - DEPRESSION [None]
